FAERS Safety Report 5149890-8 (Version None)
Quarter: 2006Q4

REPORT INFORMATION
  Report Type: 
  Country: None (occurrence: None)
  Receive Date: 20060918
  Receipt Date: 20060428
  Transmission Date: 20070319
  Serious: Yes (Hospitalization)
  Sender: FDA-Public Use
  Company Number: US-JNJFOC-20060500508

PATIENT
  Age: 44 Year
  Sex: Female

DRUGS (3)
  1. TOPAMAX [Suspect]
     Indication: MIGRAINE PROPHYLAXIS
     Dosage: 50 MG, 2 IN 1DAY, ORAL
     Route: 048
     Dates: start: 20051101
  2. LABETALOL HCL [Concomitant]
  3. NORVASC [Concomitant]

REACTIONS (1)
  - PARAESTHESIA [None]
